FAERS Safety Report 16962284 (Version 1)
Quarter: 2019Q4

REPORT INFORMATION
  Report Type: Spontaneous
  Country: US (occurrence: US)
  Receive Date: 20191024
  Receipt Date: 20191024
  Transmission Date: 20200122
  Serious: Yes (Hospitalization)
  Sender: FDA-Public Use
  Company Number: None

PATIENT
  Sex: Male

DRUGS (17)
  1. LEVOTHYROXIN [Concomitant]
     Active Substance: LEVOTHYROXINE
  2. METOPROLOL TARTRATE. [Concomitant]
     Active Substance: METOPROLOL TARTRATE
  3. NIFEDIPINE. [Concomitant]
     Active Substance: NIFEDIPINE
  4. ONETOUCH [Concomitant]
  5. LANTUS [Concomitant]
     Active Substance: INSULIN GLARGINE
  6. TACROLIMUS. [Concomitant]
     Active Substance: TACROLIMUS
  7. TORSEMIDE. [Concomitant]
     Active Substance: TORSEMIDE
  8. TRESIBA FLEX [Concomitant]
  9. DOXYCYCL [Concomitant]
  10. MAGNESIUM [Concomitant]
     Active Substance: MAGNESIUM
  11. DOK [Concomitant]
     Active Substance: DOCUSATE SODIUM
  12. NOVOLOG [Concomitant]
     Active Substance: INSULIN ASPART
  13. SENSIPAR [Suspect]
     Active Substance: CINACALCET HYDROCHLORIDE
     Indication: PRODUCT USED FOR UNKNOWN INDICATION
     Route: 048
     Dates: start: 20180518
  14. INSULIN [Concomitant]
     Active Substance: INSULIN NOS
  15. HUMALOG [Concomitant]
     Active Substance: INSULIN LISPRO
  16. OMEPRAZOLE. [Concomitant]
     Active Substance: OMEPRAZOLE
  17. SIMVASTATIN. [Concomitant]
     Active Substance: SIMVASTATIN

REACTIONS (2)
  - Localised infection [None]
  - Peripheral swelling [None]
